FAERS Safety Report 4962155-X (Version None)
Quarter: 2006Q2

REPORT INFORMATION
  Report Type: 
  Country: None (occurrence: None)
  Receive Date: 20060404
  Receipt Date: 20050707
  Transmission Date: 20061013
  Serious: Yes (Hospitalization)
  Sender: FDA-Public Use
  Company Number: US-MERCK-0507USA01363

PATIENT
  Age: 62 Year
  Sex: Male
  Weight: 75 kg

DRUGS (8)
  1. VIOXX [Suspect]
     Indication: BONE PAIN
     Route: 048
     Dates: start: 19990101, end: 20041001
  2. VIOXX [Suspect]
     Indication: SHOULDER OPERATION
     Route: 048
     Dates: start: 19990101, end: 20041001
  3. NORVASC [Concomitant]
     Route: 065
     Dates: start: 20000101
  4. AMBIEN [Concomitant]
     Route: 065
  5. ULTRAM [Concomitant]
     Route: 065
  6. ZOCOR [Concomitant]
     Route: 065
     Dates: start: 20000101
  7. CARDURA [Concomitant]
     Route: 065
     Dates: start: 19990101
  8. TYLENOL (CAPLET) [Concomitant]
     Route: 065
     Dates: start: 19890101

REACTIONS (4)
  - ARTERIOSCLEROSIS [None]
  - ARTHROPATHY [None]
  - CARDIAC DISORDER [None]
  - MYOCARDIAL INFARCTION [None]
